FAERS Safety Report 6074990-8 (Version None)
Quarter: 2009Q1

REPORT INFORMATION
  Report Type: 
  Country: None (occurrence: None)
  Receive Date: 20090212
  Receipt Date: 20090206
  Transmission Date: 20090719
  Serious: Yes (Hospitalization)
  Sender: FDA-Public Use
  Company Number: DE-WYE-G03074509

PATIENT
  Sex: Female

DRUGS (2)
  1. VENLAFAXINE HCL [Suspect]
     Indication: ANXIETY
     Route: 048
     Dates: start: 20080801, end: 20081201
  2. VENLAFAXINE HCL [Suspect]
     Indication: DEPRESSION
     Dosage: REDUCED DOSE
     Route: 048
     Dates: start: 20081201

REACTIONS (6)
  - ABDOMINAL PAIN [None]
  - ARTHRALGIA [None]
  - DRUG WITHDRAWAL SYNDROME [None]
  - INTENTIONAL DRUG MISUSE [None]
  - MUSCULOSKELETAL PAIN [None]
  - TENDON PAIN [None]
